FAERS Safety Report 25690701 (Version 1)
Quarter: 2025Q3

REPORT INFORMATION
  Report Type: Spontaneous
  Country: US (occurrence: None)
  Receive Date: 20250817
  Receipt Date: 20250817
  Transmission Date: 20251020
  Serious: Yes (Disabling, Other)
  Sender: FDA-CTU
  Company Number: None

PATIENT
  Age: 41 Year
  Sex: Male
  Weight: 58.5 kg

DRUGS (10)
  1. INVEGA SUSTENNA [Suspect]
     Active Substance: PALIPERIDONE PALMITATE
     Indication: Schizophrenia
     Route: 030
  2. GENVOYA [Concomitant]
     Active Substance: COBICISTAT\ELVITEGRAVIR\EMTRICITABINE\TENOFOVIR ALAFENAMIDE FUMARATE
  3. MINOXIDIL [Concomitant]
     Active Substance: MINOXIDIL
  4. HYDROXYZINE [Concomitant]
     Active Substance: HYDROXYZINE HYDROCHLORIDE
  5. TRAZODONE [Concomitant]
     Active Substance: TRAZODONE HYDROCHLORIDE
  6. PALIPERIDONE [Concomitant]
     Active Substance: PALIPERIDONE
  7. INVEGA SUSTENNA [Concomitant]
     Active Substance: PALIPERIDONE PALMITATE
  8. abuterol [Concomitant]
  9. Vitamin D3 2000 ou [Concomitant]
  10. fiber powder [Concomitant]

REACTIONS (4)
  - Limb injury [None]
  - Injection related reaction [None]
  - Pain [None]
  - Mobility decreased [None]

NARRATIVE: CASE EVENT DATE: 20250728
